FAERS Safety Report 7746363-0 (Version None)
Quarter: 2011Q3

REPORT INFORMATION
  Report Type: 
  Country: None (occurrence: None)
  Receive Date: 20110913
  Receipt Date: 20110902
  Transmission Date: 20111222
  Serious: Yes (Death, Other)
  Sender: FDA-Public Use
  Company Number: JP-ROCHE-798934

PATIENT
  Sex: Female
  Weight: 50 kg

DRUGS (5)
  1. ALOXI [Concomitant]
     Route: 041
     Dates: start: 20110404, end: 20110627
  2. AVASTIN [Suspect]
     Indication: COLON CANCER METASTATIC
     Dosage: DOSE: 7.5 MG/KG
     Route: 041
     Dates: start: 20110404, end: 20110627
  3. OXALIPLATIN [Concomitant]
     Route: 041
     Dates: start: 20110404, end: 20110627
  4. XELODA [Suspect]
     Indication: COLON CANCER METASTATIC
     Route: 048
     Dates: start: 20110404, end: 20110627
  5. DECADRON [Concomitant]
     Route: 041
     Dates: start: 20110404, end: 20110627

REACTIONS (8)
  - METASTASES TO PERITONEUM [None]
  - WOUND DEHISCENCE [None]
  - GASTROOESOPHAGEAL REFLUX DISEASE [None]
  - HYPOTENSION [None]
  - CONSTIPATION [None]
  - MULTI-ORGAN FAILURE [None]
  - INFECTIOUS PERITONITIS [None]
  - SMALL INTESTINAL PERFORATION [None]
